FAERS Safety Report 8939283 (Version 1)
Quarter: 2012Q4

REPORT INFORMATION
  Report Type: 
  Country: CO (occurrence: CO)
  Receive Date: 20121203
  Receipt Date: 20121203
  Transmission Date: 20130627
  Serious: Yes (Death, Hospitalization)
  Sender: FDA-Public Use
  Company Number: CO-SANOFI-AVENTIS-2012SA087359

PATIENT
  Age: 91 Year
  Sex: Female

DRUGS (1)
  1. LANTUS [Suspect]
     Indication: DIABETES MELLITUS
     Route: 058
     Dates: start: 2008

REACTIONS (3)
  - Acute myocardial infarction [Fatal]
  - Respiratory distress [Fatal]
  - Multi-organ failure [Unknown]
